FAERS Safety Report 12276681 (Version 1)
Quarter: 2016Q2

REPORT INFORMATION
  Report Type: Spontaneous
  Country: US (occurrence: None)
  Receive Date: 20160415
  Receipt Date: 20160415
  Transmission Date: 20160815
  Serious: Yes (Other)
  Sender: FDA-Public Use
  Company Number: None

PATIENT
  Age: 61 Year
  Sex: Male
  Weight: 99.79 kg

DRUGS (1)
  1. DULOXETINE 60 MG APOTEX [Suspect]
     Active Substance: DULOXETINE
     Indication: DEPRESSION
     Route: 048
     Dates: start: 20150415

REACTIONS (3)
  - Fall [None]
  - Muscle spasms [None]
  - Hypoaesthesia [None]

NARRATIVE: CASE EVENT DATE: 20160401
